FAERS Safety Report 12774189 (Version 1)
Quarter: 2016Q3

REPORT INFORMATION
  Report Type: Spontaneous
  Country: US (occurrence: US)
  Receive Date: 20160923
  Receipt Date: 20160923
  Transmission Date: 20161109
  Serious: No
  Sender: FDA-Public Use
  Company Number: US-PFIZER INC-2016434485

PATIENT
  Age: 81 Year
  Sex: Female
  Weight: 72.56 kg

DRUGS (1)
  1. VERAPAMIL HCL [Suspect]
     Active Substance: VERAPAMIL HYDROCHLORIDE
     Dosage: 0.5 DF, 4X/DAY (40 MG, 90 COUNT)
     Route: 048

REACTIONS (14)
  - Drug ineffective [Not Recovered/Not Resolved]
  - Intentional product misuse [Not Recovered/Not Resolved]
  - Drug effect decreased [Unknown]
  - Wrong technique in product usage process [Not Recovered/Not Resolved]
  - Poor quality drug administered [Not Recovered/Not Resolved]
  - Product physical issue [Unknown]
  - Drug intolerance [Not Recovered/Not Resolved]
  - Neuralgia [Unknown]
  - Product use issue [Unknown]
  - Dizziness [Not Recovered/Not Resolved]
  - Heart rate decreased [Not Recovered/Not Resolved]
  - Heart rate irregular [Not Recovered/Not Resolved]
  - Asthenia [Not Recovered/Not Resolved]
  - Activities of daily living impaired [Not Recovered/Not Resolved]

NARRATIVE: CASE EVENT DATE: 2016
